FAERS Safety Report 10645457 (Version 1)
Quarter: 2014Q4

REPORT INFORMATION
  Report Type: Spontaneous
  Country: US (occurrence: None)
  Receive Date: 20141202
  Receipt Date: 20141202
  Transmission Date: 20150529
  Serious: No
  Sender: FDA-Public Use
  Company Number: TPA2013A07223

PATIENT
  Age: 60 Year
  Sex: Male

DRUGS (2)
  1. NESINA [Suspect]
     Active Substance: ALOGLIPTIN BENZOATE
     Indication: DIABETES MELLITUS
     Route: 048
     Dates: start: 201307, end: 201307
  2. INSULIN [Concomitant]
     Active Substance: INSULIN NOS

REACTIONS (1)
  - Oedema peripheral [None]

NARRATIVE: CASE EVENT DATE: 201307
